FAERS Safety Report 10441078 (Version 1)
Quarter: 2014Q3

REPORT INFORMATION
  Report Type: Spontaneous
  Country: US (occurrence: None)
  Receive Date: 20140908
  Receipt Date: 20140908
  Transmission Date: 20150326
  Serious: Yes (Other)
  Sender: FDA-Public Use
  Company Number: None

PATIENT
  Age: 86 Year
  Sex: Male

DRUGS (4)
  1. LUPRON DEPOT [Concomitant]
     Active Substance: LEUPROLIDE ACETATE
  2. MAGNESIUM [Concomitant]
     Active Substance: MAGNESIUM
  3. XTANDI [Suspect]
     Active Substance: ENZALUTAMIDE
     Indication: PROSTATE CANCER
     Route: 048
     Dates: start: 20140429, end: 20140905
  4. EUFLEXXA [Concomitant]
     Active Substance: HYALURONATE SODIUM

REACTIONS (2)
  - Drug ineffective [None]
  - Neoplasm [None]

NARRATIVE: CASE EVENT DATE: 20140905
